FAERS Safety Report 4924261-5 (Version None)
Quarter: 2006Q1

REPORT INFORMATION
  Report Type: 
  Country: None (occurrence: None)
  Receive Date: 20060221
  Receipt Date: 20060208
  Transmission Date: 20060701
  Serious: Yes (Other)
  Sender: FDA-Public Use
  Company Number: 2006020050

PATIENT
  Sex: Male
  Weight: 90.7194 kg

DRUGS (22)
  1. VIAGRA [Suspect]
     Indication: ERECTILE DYSFUNCTION
     Dosage: 100 MG
  2. INSULIN [Concomitant]
  3. METFORMIN HCL [Concomitant]
  4. GABAPENTIN [Concomitant]
  5. LIPITOR [Concomitant]
  6. FUROSEMIDE [Concomitant]
  7. GLYBURIDE [Concomitant]
  8. ZOLOFT [Concomitant]
  9. NIFEDIPINE [Concomitant]
  10. QUININE SULFATE [Concomitant]
  11. METOPROLOL (METOPROLOL) [Concomitant]
  12. VITAMIN E [Concomitant]
  13. EXELON [Concomitant]
  14. PLAVIX [Concomitant]
  15. AMBIEN [Concomitant]
  16. DETROL [Concomitant]
  17. AMOXICILLIN [Concomitant]
  18. ALTACE [Concomitant]
  19. OXYCODONE AND ACETAMINOPHEN [Concomitant]
  20. NORTRIPTYLINE HCL [Concomitant]
  21. PSYLLIUM HYDROPHILIC MUCILLOID (PSYLLIUM HYDROPHILIC MUCILLOID) [Concomitant]
  22. NITROGLYCERIN [Concomitant]

REACTIONS (2)
  - CATARACT OPERATION [None]
  - DRUG INEFFECTIVE [None]
